FAERS Safety Report 15429914 (Version 1)
Quarter: 2018Q3

REPORT INFORMATION
  Report Type: Spontaneous
  Country: DE (occurrence: DE)
  Receive Date: 20180926
  Receipt Date: 20180926
  Transmission Date: 20181010
  Serious: Yes (Congenital Anomaly)
  Sender: FDA-Public Use
  Company Number: DE-ALLERGAN-1846009US

PATIENT
  Age: 1 Day
  Sex: Female

DRUGS (6)
  1. VELNATAL PLUS [Concomitant]
     Indication: PROPHYLAXIS OF NEURAL TUBE DEFECT
     Dosage: 0.4 MG, DAILY
     Route: 064
     Dates: start: 20170707, end: 20180205
  2. BUSCOPAN [Concomitant]
     Active Substance: BUTYLSCOPOLAMINE BROMIDE
     Indication: GASTROINTESTINAL PAIN
     Dosage: UNK
     Route: 064
     Dates: start: 20170619, end: 20170621
  3. BACTRIM [Concomitant]
     Active Substance: SULFAMETHOXAZOLE\TRIMETHOPRIM
     Indication: CYSTITIS
     Dosage: UNK UNK, QD
     Route: 064
     Dates: start: 20170619, end: 20170622
  4. LEVOTHYROXINE SODIUM. [Concomitant]
     Active Substance: LEVOTHYROXINE SODIUM
     Indication: HYPOTHYROIDISM
     Dosage: 12.5 ?G, 1 PER DAY
     Route: 064
  5. NOVAMINSULFON [Concomitant]
     Active Substance: METAMIZOLE
     Indication: GASTROINTESTINAL PAIN
     Dosage: UNK
     Route: 064
     Dates: start: 20170619, end: 20170621
  6. NEBIVOLOL HCL ? BP [Suspect]
     Active Substance: NEBIVOLOL
     Indication: MATERNAL EXPOSURE TIMING UNSPECIFIED
     Dosage: 2.5 MG, DAILY
     Dates: start: 20170518, end: 20180205

REACTIONS (4)
  - Patent ductus arteriosus [Unknown]
  - Microtia [Not Recovered/Not Resolved]
  - Atrial septal defect [Unknown]
  - External auditory canal atresia [Not Recovered/Not Resolved]

NARRATIVE: CASE EVENT DATE: 20180205
